FAERS Safety Report 10157216 (Version 1)
Quarter: 2014Q2

REPORT INFORMATION
  Report Type: Spontaneous
  Country: US (occurrence: US)
  Receive Date: 20140507
  Receipt Date: 20140507
  Transmission Date: 20141212
  Serious: Yes (Other)
  Sender: FDA-Public Use
  Company Number: US-ASTRAZENECA-2014SE29397

PATIENT
  Age: 59 Year
  Sex: Female
  Weight: 72.6 kg

DRUGS (15)
  1. CRESTOR [Suspect]
     Indication: BLOOD CHOLESTEROL ABNORMAL
     Route: 048
  2. CRESTOR [Suspect]
     Indication: BLOOD CHOLESTEROL ABNORMAL
     Route: 048
  3. RANITIDINE [Concomitant]
     Indication: ADVERSE DRUG REACTION
  4. MULTIVITAMIN [Concomitant]
     Dosage: NR DAILY
  5. ASPIRIN [Concomitant]
  6. HERBAL GARLIC SUPPLEMENT [Concomitant]
     Indication: BLOOD CHOLESTEROL ABNORMAL
  7. BLACK COHOSH [Concomitant]
     Indication: HOT FLUSH
  8. VALIUM [Concomitant]
     Indication: SLEEP DISORDER
  9. VALIUM [Concomitant]
     Indication: ANXIETY
  10. FISH OIL [Concomitant]
  11. AMBIEN [Concomitant]
     Indication: SLEEP DISORDER
  12. SYNTHROID [Concomitant]
     Indication: THYROID DISORDER
     Dosage: 150MCG DAILY
  13. FLUOXETINE [Concomitant]
     Indication: DEPRESSION
  14. GABAPENTIN [Concomitant]
     Indication: FIBROMYALGIA
  15. COQ10 [Concomitant]

REACTIONS (4)
  - Arterial stenosis [Unknown]
  - Blood cholesterol increased [Not Recovered/Not Resolved]
  - Abdominal discomfort [Unknown]
  - Drug ineffective [Unknown]
